FAERS Safety Report 5867291-1 (Version None)
Quarter: 2008Q3

REPORT INFORMATION
  Report Type: 
  Country: None (occurrence: None)
  Receive Date: 20080829
  Receipt Date: 20080829
  Transmission Date: 20090109
  Serious: Yes (Hospitalization)
  Sender: FDA-Public Use
  Company Number: None

PATIENT
  Sex: Female
  Weight: 21.4 kg

DRUGS (5)
  1. DEXAMETHASONE [Suspect]
     Dosage: 50 MG
  2. MERCAPTOPURINE [Suspect]
     Dosage: 1528.6 MG
  3. METHOTREXATE [Suspect]
     Dosage: 90 MG
  4. PEG-L- [Suspect]
     Dosage: 2100 IU
  5. VINCRISTINE SULFATE [Suspect]
     Dosage: 14.4 MG

REACTIONS (9)
  - ACIDOSIS [None]
  - CARDIO-RESPIRATORY ARREST [None]
  - HEADACHE [None]
  - HYPOTENSION [None]
  - KLEBSIELLA INFECTION [None]
  - NEUTROPENIA [None]
  - PYREXIA [None]
  - SEPTIC SHOCK [None]
  - VOMITING [None]
